FAERS Safety Report 4700593-0 (Version None)
Quarter: 2005Q2

REPORT INFORMATION
  Report Type: 
  Country: None (occurrence: None)
  Receive Date: 20050627
  Receipt Date: 20050615
  Transmission Date: 20051028
  Serious: Yes (Death)
  Sender: FDA-Public Use
  Company Number: 2005-06-0901

PATIENT
  Age: 82 Year
  Sex: Female

DRUGS (1)
  1. INTRON A [Suspect]
     Indication: RENAL CELL CARCINOMA STAGE UNSPECIFIED
     Dosage: 3 MIU BIW

REACTIONS (6)
  - COLONOSCOPY ABNORMAL [None]
  - DIARRHOEA [None]
  - ENTEROCOLITIS [None]
  - EOSINOPHIL COUNT INCREASED [None]
  - MELAENA [None]
  - PYREXIA [None]
